FAERS Safety Report 10450641 (Version 1)
Quarter: 2014Q3

REPORT INFORMATION
  Report Type: Spontaneous
  Country: GB (occurrence: GB)
  Receive Date: 20140912
  Receipt Date: 20140912
  Transmission Date: 20150326
  Serious: Yes (Disabling)
  Sender: FDA-Public Use
  Company Number: GB-BRISTOL-MYERS SQUIBB COMPANY-21358080

PATIENT
  Age: 69 Year
  Sex: Male

DRUGS (4)
  1. SOLIFENACIN SUCCINATE [Concomitant]
     Active Substance: SOLIFENACIN SUCCINATE
  2. ELIQUIS [Suspect]
     Active Substance: APIXABAN
     Indication: CEREBROVASCULAR ACCIDENT PROPHYLAXIS
     Dosage: 5MG TWICE DAILY (BD)
     Dates: start: 201312
  3. FINASTERIDE. [Concomitant]
     Active Substance: FINASTERIDE
  4. BISOPROLOL [Concomitant]
     Active Substance: BISOPROLOL

REACTIONS (4)
  - Dyspnoea [Unknown]
  - Anaemia [Unknown]
  - Gastrointestinal haemorrhage [Not Recovered/Not Resolved]
  - Myalgia [Unknown]

NARRATIVE: CASE EVENT DATE: 201408
